FAERS Safety Report 20775855 (Version 1)
Quarter: 2022Q2

REPORT INFORMATION
  Report Type: Spontaneous
  Country: US (occurrence: US)
  Receive Date: 20220502
  Receipt Date: 20220502
  Transmission Date: 20220721
  Serious: No
  Sender: FDA-Public Use
  Company Number: US-PFIZER INC-202101235318

PATIENT
  Age: 54 Year
  Sex: Female

DRUGS (3)
  1. LYRICA [Suspect]
     Active Substance: PREGABALIN
     Dosage: UNK
  2. REMODULIN [Suspect]
     Active Substance: TREPROSTINIL
     Indication: Pulmonary arterial hypertension
     Dosage: UNK
     Route: 058
     Dates: start: 20210721
  3. REMODULIN [Suspect]
     Active Substance: TREPROSTINIL
     Dosage: 0.031 UG/KG
     Route: 058
     Dates: start: 2021

REACTIONS (4)
  - Dyskinesia [Unknown]
  - Pyrexia [Recovering/Resolving]
  - Electrolyte imbalance [Unknown]
  - Infusion site extravasation [Unknown]

NARRATIVE: CASE EVENT DATE: 20210906
